FAERS Safety Report 21593229 (Version 1)
Quarter: 2022Q4

REPORT INFORMATION
  Report Type: Spontaneous
  Country: US (occurrence: None)
  Receive Date: 20221111
  Receipt Date: 20221111
  Transmission Date: 20230112
  Serious: Yes (Hospitalization)
  Sender: FDA-Public Use
  Company Number: None

PATIENT
  Sex: Male
  Weight: 80.29 kg

DRUGS (9)
  1. PROCRIT [Suspect]
     Active Substance: ERYTHROPOIETIN
     Indication: Myelodysplastic syndrome
     Dosage: FREQUENCY : WEEKLY;?
     Route: 058
  2. ALLOPURINOL [Concomitant]
  3. CALCITRIOL [Concomitant]
     Active Substance: CALCITRIOL
  4. ERGOCALCIFEROL [Concomitant]
  5. GRANISETRON [Concomitant]
  6. LEVOTHYROXINE [Concomitant]
  7. QUETIAPINE [Concomitant]
  8. VENLAFAXINE [Concomitant]
  9. VIDAZA [Concomitant]

REACTIONS (1)
  - Transfusion [None]
